FAERS Safety Report 7660130-8 (Version None)
Quarter: 2011Q3

REPORT INFORMATION
  Report Type: 
  Country: None (occurrence: None)
  Receive Date: 20110805
  Receipt Date: 20110802
  Transmission Date: 20111222
  Serious: Yes (Life-Threatening, Hospitalization)
  Sender: FDA-Public Use
  Company Number: ZW-B.I. PHARMACEUTICALS,INC./RIDGEFIELD-2011-BP-14938BP

PATIENT
  Sex: Female
  Weight: 63.5 kg

DRUGS (9)
  1. VIRAMUNE [Suspect]
     Indication: HIV INFECTION
     Dosage: 400 MG
     Route: 048
     Dates: start: 20090917, end: 20110510
  2. COTRIM [Concomitant]
     Indication: PROPHYLAXIS
     Route: 048
     Dates: end: 20110628
  3. VIRAMUNE [Suspect]
     Dosage: 400 MG
     Route: 048
     Dates: start: 20110627
  4. TDF [Suspect]
     Indication: HIV INFECTION
     Dates: start: 20110627
  5. METFORMIN HCL [Suspect]
     Indication: TYPE 2 DIABETES MELLITUS
     Route: 048
     Dates: start: 20110201, end: 20110510
  6. STAVUDINE [Suspect]
     Indication: HIV INFECTION
     Dosage: 60 MG
     Route: 048
     Dates: start: 20090909, end: 20110510
  7. LAMIVUDINE [Suspect]
     Indication: HIV INFECTION
     Dosage: 300 MG
     Route: 048
     Dates: start: 20090917, end: 20110510
  8. LAMIVUDINE [Suspect]
     Dosage: 300 MG
     Route: 048
     Dates: start: 20110627
  9. ALBUTEROL [Concomitant]
     Indication: ASTHMA
     Route: 048
     Dates: end: 20110510

REACTIONS (11)
  - ABDOMINAL PAIN [None]
  - ASTHENIA [None]
  - HYPERGLYCAEMIA [None]
  - COUGH [None]
  - VOMITING [None]
  - DYSPNOEA [None]
  - LACTIC ACIDOSIS [None]
  - PNEUMONIA [None]
  - DIABETIC KETOACIDOSIS [None]
  - TREATMENT NONCOMPLIANCE [None]
  - DEHYDRATION [None]
